FAERS Safety Report 9702252 (Version 2)
Quarter: 2014Q2

REPORT INFORMATION
  Report Type: Spontaneous
  Country: AU (occurrence: AU)
  Receive Date: 20131121
  Receipt Date: 20140516
  Transmission Date: 20141212
  Serious: Yes (Hospitalization)
  Sender: FDA-Public Use
  Company Number: AU-ABBVIE-13P-008-1169713-00

PATIENT
  Age: 81 Year
  Sex: Male

DRUGS (4)
  1. LUCRIN DEPOT [Suspect]
     Indication: PROSTATE CANCER
     Route: 030
     Dates: start: 20121217
  2. WARFARIN [Concomitant]
     Indication: ATRIAL FIBRILLATION
     Route: 048
  3. SOTALOL [Concomitant]
     Indication: ATRIAL FIBRILLATION
     Route: 048
  4. VENLAFAXINE [Concomitant]
     Indication: HOT FLUSH
     Route: 048

REACTIONS (1)
  - Cerebrovascular accident [Unknown]
